FAERS Safety Report 10278597 (Version 2)
Quarter: 2014Q3

REPORT INFORMATION
  Report Type: Spontaneous
  Country: CN (occurrence: CN)
  Receive Date: 20140704
  Receipt Date: 20140721
  Transmission Date: 20150326
  Serious: Yes (Death)
  Sender: FDA-Public Use
  Company Number: CN-SA-2014SA084996

PATIENT
  Age: 43 Year
  Sex: Male

DRUGS (16)
  1. OXALIPLATIN. [Suspect]
     Active Substance: OXALIPLATIN
     Indication: HEPATIC CANCER METASTATIC
     Route: 041
     Dates: start: 20121101, end: 20121101
  2. FLUOROURACIL. [Suspect]
     Active Substance: FLUOROURACIL
     Indication: HEPATIC CANCER METASTATIC
     Dosage: ON DAY 1,DAY2 OF EVERY OTHER WEEK CYCLE
     Route: 040
     Dates: start: 20120917
  3. OXALIPLATIN. [Suspect]
     Active Substance: OXALIPLATIN
     Indication: HEPATIC CANCER METASTATIC
     Route: 041
     Dates: start: 20120917, end: 20120917
  4. FLUOROURACIL. [Suspect]
     Active Substance: FLUOROURACIL
     Indication: HEPATIC CANCER METASTATIC
     Dosage: IV PUMP D1,D2 EVERY 2 WEEK
     Route: 042
     Dates: start: 20121001
  5. FLUOROURACIL. [Suspect]
     Active Substance: FLUOROURACIL
     Indication: HEPATIC CANCER METASTATIC
     Dosage: ON DAY 1,DAY2 OF EVERY OTHER WEEK CYCLE
     Route: 040
     Dates: start: 20121015
  6. FLUOROURACIL. [Suspect]
     Active Substance: FLUOROURACIL
     Indication: HEPATIC CANCER METASTATIC
     Dosage: IV PUMP D1,D2 EVERY 2 WEEK
     Route: 042
     Dates: start: 20121015
  7. CALCIUM FOLINATE [Suspect]
     Active Substance: LEUCOVORIN CALCIUM
     Indication: HEPATIC CANCER METASTATIC
     Dosage: ON DAY 1 AND DAY 2 OF 2-WEEK CYCLE
     Route: 041
     Dates: start: 20121015
  8. FLUOROURACIL. [Suspect]
     Active Substance: FLUOROURACIL
     Indication: HEPATIC CANCER METASTATIC
     Dosage: IV PUMP D1,D2 EVERY 2 WEEK
     Route: 042
     Dates: start: 20121101
  9. FLUOROURACIL. [Suspect]
     Active Substance: FLUOROURACIL
     Indication: HEPATIC CANCER METASTATIC
     Dosage: IV PUMP D1,D2 EVERY 2 WEEK
     Route: 042
     Dates: start: 20120917
  10. FLUOROURACIL. [Suspect]
     Active Substance: FLUOROURACIL
     Indication: HEPATIC CANCER METASTATIC
     Dosage: ON DAY 1,DAY2 OF EVERY OTHER WEEK CYCLE
     Route: 040
     Dates: start: 20121001
  11. FLUOROURACIL. [Suspect]
     Active Substance: FLUOROURACIL
     Indication: HEPATIC CANCER METASTATIC
     Dosage: ON DAY 1,DAY2 OF EVERY OTHER WEEK CYCLE
     Route: 040
     Dates: start: 20121101
  12. OXALIPLATIN. [Suspect]
     Active Substance: OXALIPLATIN
     Indication: HEPATIC CANCER METASTATIC
     Route: 041
     Dates: start: 20121015, end: 20121015
  13. CALCIUM FOLINATE [Suspect]
     Active Substance: LEUCOVORIN CALCIUM
     Indication: HEPATIC CANCER METASTATIC
     Dosage: ON DAY 1 AND DAY 2 OF 2-WEEK CYCLE
     Route: 041
     Dates: start: 20120917
  14. OXALIPLATIN. [Suspect]
     Active Substance: OXALIPLATIN
     Indication: HEPATIC CANCER METASTATIC
     Route: 041
     Dates: start: 20121001, end: 20121001
  15. CALCIUM FOLINATE [Suspect]
     Active Substance: LEUCOVORIN CALCIUM
     Indication: HEPATIC CANCER METASTATIC
     Dosage: ON DAY 1 AND DAY 2 OF 2-WEEK CYCLE
     Route: 041
     Dates: start: 20121101
  16. CALCIUM FOLINATE [Suspect]
     Active Substance: LEUCOVORIN CALCIUM
     Indication: HEPATIC CANCER METASTATIC
     Dosage: ON DAY 1 AND DAY 2 OF 2-WEEK CYCLE
     Route: 041
     Dates: start: 20121001

REACTIONS (8)
  - Hepatitis B [Fatal]
  - Hepatic failure [Fatal]
  - Blood bilirubin increased [Fatal]
  - Alanine aminotransferase increased [Fatal]
  - Hepatitis B DNA increased [Fatal]
  - Aspartate aminotransferase increased [Fatal]
  - Jaundice [Fatal]
  - Bilirubin conjugated increased [Fatal]

NARRATIVE: CASE EVENT DATE: 2012
